FAERS Safety Report 25894473 (Version 1)
Quarter: 2025Q4

REPORT INFORMATION
  Report Type: Report from Study
  Country: US (occurrence: US)
  Receive Date: 20251008
  Receipt Date: 20251008
  Transmission Date: 20260118
  Serious: No
  Sender: DR REDDYS
  Company Number: US-DRL-USA-USA/2025/09/014870

PATIENT
  Sex: Female
  Weight: 68.49 kg

DRUGS (4)
  1. JAVYGTOR [Suspect]
     Active Substance: SAPROPTERIN DIHYDROCHLORIDE
     Indication: Phenylketonuria
     Dosage: DAILY DOSE: 1300 MG
     Route: 048
  2. JAVYGTOR [Suspect]
     Active Substance: SAPROPTERIN DIHYDROCHLORIDE
     Indication: Phenylketonuria
     Dosage: DAILY DOSE: 1300 MG
     Route: 048
  3. PALYNZIQ [Concomitant]
     Active Substance: PEGVALIASE-PQPZ
     Indication: Product used for unknown indication
     Route: 065
  4. VITAMINS [Concomitant]
     Active Substance: VITAMINS
     Indication: Product used for unknown indication
     Route: 065

REACTIONS (3)
  - Fatigue [Unknown]
  - Asthenia [Unknown]
  - Rash pruritic [Unknown]
